FAERS Safety Report 21019508 (Version 1)
Quarter: 2022Q2

REPORT INFORMATION
  Report Type: Spontaneous
  Country: US (occurrence: US)
  Receive Date: 20220628
  Receipt Date: 20220628
  Transmission Date: 20220720
  Serious: No
  Sender: FDA-Public Use
  Company Number: US-SA-SAC20220623000784

PATIENT
  Sex: Female

DRUGS (2)
  1. DUPIXENT [Suspect]
     Active Substance: DUPILUMAB
     Indication: Dermatitis atopic
     Dosage: 200 MG, QOW
     Route: 058
     Dates: start: 20200723
  2. CLINDAMYCIN [Interacting]
     Active Substance: CLINDAMYCIN
     Indication: Injection site reaction
     Dosage: UNK

REACTIONS (2)
  - Drug hypersensitivity [Recovering/Resolving]
  - Injection site reaction [Recovering/Resolving]
